FAERS Safety Report 13298538 (Version 1)
Quarter: 2017Q1

REPORT INFORMATION
  Report Type: Spontaneous
  Country: US (occurrence: US)
  Receive Date: 20170306
  Receipt Date: 20170306
  Transmission Date: 20170428
  Serious: No
  Sender: FDA-Public Use
  Company Number: US-BIOGEN-2017BI00363616

PATIENT
  Sex: Female

DRUGS (1)
  1. TYSABRI [Suspect]
     Active Substance: NATALIZUMAB
     Indication: MULTIPLE SCLEROSIS
     Dosage: INFUSED OVER 1 HOUR
     Route: 042
     Dates: start: 20161130

REACTIONS (5)
  - Multiple sclerosis [Recovered/Resolved]
  - Memory impairment [Unknown]
  - Mental impairment [Unknown]
  - Abasia [Recovered/Resolved]
  - Aphasia [Recovered/Resolved]
